FAERS Safety Report 17914530 (Version 3)
Quarter: 2020Q3

REPORT INFORMATION
  Report Type: Spontaneous
  Country: US (occurrence: US)
  Receive Date: 20200619
  Receipt Date: 20200714
  Transmission Date: 20201103
  Serious: Yes (Hospitalization, Other)
  Sender: FDA-Public Use
  Company Number: US-HIKMA PHARMACEUTICALS USA INC.-US-H14001-20-02893

PATIENT
  Sex: Male
  Weight: 58.57 kg

DRUGS (5)
  1. OXYCONTIN [Concomitant]
     Active Substance: OXYCODONE HYDROCHLORIDE
     Indication: PRODUCT USED FOR UNKNOWN INDICATION
     Route: 065
  2. MORPHINE [Suspect]
     Active Substance: MORPHINE
     Indication: PRODUCT USED FOR UNKNOWN INDICATION
     Route: 065
  3. DILAUDID [Concomitant]
     Active Substance: HYDROMORPHONE HYDROCHLORIDE
     Indication: PRODUCT USED FOR UNKNOWN INDICATION
     Route: 065
  4. METHADONE [Suspect]
     Active Substance: METHADONE HYDROCHLORIDE
     Indication: PRODUCT USED FOR UNKNOWN INDICATION
     Route: 065
  5. HYDROCODONE [Concomitant]
     Active Substance: HYDROCODONE
     Indication: PRODUCT USED FOR UNKNOWN INDICATION
     Route: 065

REACTIONS (17)
  - Hypertension [Unknown]
  - Abdominal discomfort [Unknown]
  - Anorectal discomfort [Unknown]
  - Blood pressure decreased [Unknown]
  - Hypoacusis [Unknown]
  - Fall [Unknown]
  - Pancreatitis [Unknown]
  - Sepsis [Unknown]
  - Chills [Unknown]
  - Dental caries [Unknown]
  - Drug abuse [Unknown]
  - Facial bones fracture [Unknown]
  - Weight fluctuation [Unknown]
  - Sleep apnoea syndrome [Unknown]
  - Near death experience [Unknown]
  - Nervous system disorder [Unknown]
  - Spinal fusion surgery [Unknown]
